FAERS Safety Report 6189047-5 (Version None)
Quarter: 2009Q2

REPORT INFORMATION
  Report Type: 
  Country: None (occurrence: None)
  Receive Date: 20090513
  Receipt Date: 20090504
  Transmission Date: 20091009
  Serious: Yes (Death, Other)
  Sender: FDA-Public Use
  Company Number: US-WYE-H09265509

PATIENT
  Sex: Female

DRUGS (4)
  1. PREMARIN [Suspect]
  2. ESTRADERM [Suspect]
  3. NORLUTATE [Suspect]
  4. PROVERA [Suspect]

REACTIONS (1)
  - OVARIAN CANCER METASTATIC [None]
